APPROVED DRUG PRODUCT: COLYTE
Active Ingredient: POLYETHYLENE GLYCOL 3350; POTASSIUM CHLORIDE; SODIUM BICARBONATE; SODIUM CHLORIDE; SODIUM SULFATE ANHYDROUS
Strength: 240GM/BOT;2.98GM/BOT;6.72GM/BOT;5.84GM/BOT;22.72GM/BOT **Federal Register determination that product was not discontinued or withdrawn for safety or effectiveness reasons**
Dosage Form/Route: FOR SOLUTION;ORAL
Application: N018983 | Product #007
Applicant: QUAGEN PHARMACEUTICALS LLC
Approved: Jun 12, 1987 | RLD: No | RS: No | Type: DISCN